FAERS Safety Report 17983795 (Version 1)
Quarter: 2020Q3

REPORT INFORMATION
  Report Type: Spontaneous
  Country: CA (occurrence: CA)
  Receive Date: 20200706
  Receipt Date: 20200706
  Transmission Date: 20201103
  Serious: Yes (Life-Threatening)
  Sender: FDA-Public Use
  Company Number: CA-TEVA-2020-CA-1796611

PATIENT
  Age: 16 Year
  Sex: Male
  Weight: 58 kg

DRUGS (17)
  1. LORAZEPAM. [Concomitant]
     Active Substance: LORAZEPAM
  2. SENNOSIDES. [Concomitant]
     Active Substance: SENNOSIDES
  3. VALACYCLOVIR [Concomitant]
     Active Substance: VALACYCLOVIR HYDROCHLORIDE
  4. DOXORUBICIN HYDROCHLORIDE INJECTION [Suspect]
     Active Substance: DOXORUBICIN HYDROCHLORIDE
     Indication: OSTEOSARCOMA
     Route: 042
  5. FAMOTIDINE. [Concomitant]
     Active Substance: FAMOTIDINE
  6. NYSTATIN. [Concomitant]
     Active Substance: NYSTATIN
  7. POLYETHYLENE GLYCOL [Concomitant]
     Active Substance: POLYETHYLENE GLYCOLS
  8. ONDANSETRON [Concomitant]
     Active Substance: ONDANSETRON
  9. SULFAMETHOXAZOLE AND TRIMETHOPRIM [Concomitant]
     Active Substance: SULFAMETHOXAZOLE\TRIMETHOPRIM
  10. VANCOMYCIN [Concomitant]
     Active Substance: VANCOMYCIN
  11. ACETAMINOPHEN. [Concomitant]
     Active Substance: ACETAMINOPHEN
  12. HEPARIN CALCIUM [Concomitant]
     Active Substance: HEPARIN CALCIUM
  13. CISPLATIN INJECTION [Suspect]
     Active Substance: CISPLATIN
     Indication: OSTEOSARCOMA
     Route: 042
  14. MELATONIN [Concomitant]
     Active Substance: MELATONIN
  15. FILGRASTIM [Concomitant]
     Active Substance: FILGRASTIM
  16. MAGNESIUM [Concomitant]
     Active Substance: MAGNESIUM
  17. DIMENHYDRINATE. [Concomitant]
     Active Substance: DIMENHYDRINATE

REACTIONS (6)
  - Pancytopenia [Unknown]
  - Dehydration [Unknown]
  - Nausea [Unknown]
  - Thrombocytopenia [Unknown]
  - Platelet transfusion [Unknown]
  - Vomiting [Unknown]
